FAERS Safety Report 16270080 (Version 1)
Quarter: 2019Q2

REPORT INFORMATION
  Report Type: Report from Study
  Country: HK (occurrence: HK)
  Receive Date: 20190503
  Receipt Date: 20190503
  Transmission Date: 20190711
  Serious: Yes (Other)
  Sender: FDA-Public Use
  Company Number: HK-AMGEN-HKGSL2019069709

PATIENT
  Age: 79 Year
  Sex: Female

DRUGS (2)
  1. KYPROLIS [Suspect]
     Active Substance: CARFILZOMIB
     Indication: PLASMA CELL MYELOMA
     Dosage: 30 MILLIGRAM/SQ. METER, QWK
     Route: 042
     Dates: start: 201901
  2. KYPROLIS [Suspect]
     Active Substance: CARFILZOMIB
     Dosage: UNK (REDUCED DOSE)
     Route: 042
     Dates: start: 2019

REACTIONS (3)
  - Renal impairment [Not Recovered/Not Resolved]
  - Cardiac dysfunction [Unknown]
  - Blood test abnormal [Unknown]

NARRATIVE: CASE EVENT DATE: 2019
